FAERS Safety Report 4761019-4 (Version None)
Quarter: 2005Q3

REPORT INFORMATION
  Report Type: 
  Country: None (occurrence: None)
  Receive Date: 20050901
  Receipt Date: 20050819
  Transmission Date: 20060218
  Serious: Yes (Death)
  Sender: FDA-Public Use
  Company Number: EM2005-0411

PATIENT

DRUGS (1)
  1. PROLEUKIN [Suspect]
     Indication: MALIGNANT MELANOMA

REACTIONS (1)
  - DRUG TOXICITY [None]
